FAERS Safety Report 11842749 (Version 2)
Quarter: 2016Q1

REPORT INFORMATION
  Report Type: Spontaneous
  Country: JP (occurrence: JP)
  Receive Date: 20151216
  Receipt Date: 20160126
  Transmission Date: 20160526
  Serious: Yes (Death, Hospitalization, Other)
  Sender: FDA-Public Use
  Company Number: JP-ELI_LILLY_AND_COMPANY-JP201512003468

PATIENT
  Age: 33 Year
  Sex: Male
  Weight: 65 kg

DRUGS (7)
  1. ALIMTA [Suspect]
     Active Substance: PEMETREXED DISODIUM
     Indication: PERICARDIAL MESOTHELIOMA MALIGNANT
     Dosage: 500 MG/M2, OTHER
     Route: 042
     Dates: start: 20130219, end: 20130607
  2. CISPLATIN. [Concomitant]
     Active Substance: CISPLATIN
     Dosage: 25 MG/M2, OTHER
     Dates: start: 20140311, end: 20140616
  3. ALIMTA [Suspect]
     Active Substance: PEMETREXED DISODIUM
     Dosage: UNK
     Route: 042
     Dates: start: 20150106, end: 20150106
  4. LANSOPRAZOLE. [Concomitant]
     Active Substance: LANSOPRAZOLE
     Indication: PROPHYLAXIS
     Dosage: UNK
     Route: 048
     Dates: start: 20141024, end: 20150126
  5. METHYCOBAL [Concomitant]
     Active Substance: METHYLCOBALAMIN
     Indication: PROPHYLAXIS
     Dosage: UNK
     Dates: start: 20141231, end: 20150126
  6. CISPLATIN. [Concomitant]
     Active Substance: CISPLATIN
     Indication: PERICARDIAL MESOTHELIOMA MALIGNANT
     Dosage: 75 MG/M2, OTHER
     Dates: start: 20130219, end: 20130607
  7. PANVITAN                           /05664201/ [Concomitant]
     Active Substance: VITAMINS
     Indication: PROPHYLAXIS
     Dosage: UNK
     Route: 048
     Dates: start: 20141231, end: 20141231

REACTIONS (10)
  - Metastases to pleura [Unknown]
  - Off label use [Recovered/Resolved]
  - Malignant neoplasm progression [Fatal]
  - Metastases to skin [Unknown]
  - Metastases to lung [Unknown]
  - Respiratory failure [Fatal]
  - Febrile neutropenia [Recovered/Resolved]
  - Metastases to gallbladder [Unknown]
  - Pleural effusion [Fatal]
  - Metastases to liver [Unknown]

NARRATIVE: CASE EVENT DATE: 2013
